FAERS Safety Report 5295438-7 (Version None)
Quarter: 2007Q2

REPORT INFORMATION
  Report Type: 
  Country: None (occurrence: None)
  Receive Date: 20070412
  Receipt Date: 20070403
  Transmission Date: 20071010
  Serious: Yes (Hospitalization, Other)
  Sender: FDA-Public Use
  Company Number: US-GENENTECH-238819

PATIENT
  Age: 54 Year
  Sex: Female

DRUGS (6)
  1. AVASTIN [Suspect]
     Indication: COLORECTAL CANCER METASTATIC
     Dosage: 10 MG/KG, Q2W
     Route: 042
     Dates: start: 20070116
  2. LEUCOVORIN CALCIUM [Concomitant]
     Indication: COLON CANCER METASTATIC
     Dosage: 400 MG/M2, Q2W
  3. OXALIPLATIN [Concomitant]
     Indication: COLON CANCER METASTATIC
     Dosage: 65 MG/M2, Q2W
  4. FLUOROURACIL [Concomitant]
     Indication: COLON CANCER METASTATIC
     Dosage: 300 MG/M2, Q2W
     Route: 042
  5. ESTRADIOL [Concomitant]
     Indication: OESTROGEN DEFICIENCY
     Dosage: 0.5 MG, QD
  6. LISINOPRIL [Concomitant]
     Dosage: 20 MG, QD

REACTIONS (1)
  - HYDRONEPHROSIS [None]
